FAERS Safety Report 18220853 (Version 1)
Quarter: 2020Q3

REPORT INFORMATION
  Report Type: Spontaneous
  Country: RO (occurrence: RO)
  Receive Date: 20200902
  Receipt Date: 20200902
  Transmission Date: 20201103
  Serious: Yes (Other)
  Sender: FDA-Public Use
  Company Number: RO-PFIZER INC-2020336500

PATIENT
  Age: 70 Year
  Weight: 70 kg

DRUGS (2)
  1. TRAMADOL. [Concomitant]
     Active Substance: TRAMADOL
     Dosage: 50 MG/ ML X 2/ DAY
     Dates: start: 20200807, end: 20200813
  2. LYRICA [Suspect]
     Active Substance: PREGABALIN
     Dosage: 2 TABLETS PER DAY
     Dates: start: 20200807, end: 20200810

REACTIONS (4)
  - Face oedema [Not Recovered/Not Resolved]
  - Hypersensitivity [Not Recovered/Not Resolved]
  - Respiration abnormal [Not Recovered/Not Resolved]
  - Erythema [Not Recovered/Not Resolved]

NARRATIVE: CASE EVENT DATE: 20200807
